FAERS Safety Report 19127520 (Version 1)
Quarter: 2021Q2

REPORT INFORMATION
  Report Type: Spontaneous
  Country: GB (occurrence: GB)
  Receive Date: 20210413
  Receipt Date: 20210413
  Transmission Date: 20210717
  Serious: Yes (Hospitalization)
  Sender: FDA-Public Use
  Company Number: NVSC2021GB078149

PATIENT
  Sex: Male

DRUGS (3)
  1. ADOPORT [Suspect]
     Active Substance: TACROLIMUS
     Dosage: UNK
     Route: 065
  2. CELLCEPT [Suspect]
     Active Substance: MYCOPHENOLATE MOFETIL\MYCOPHENOLATE MOFETIL HYDROCHLORIDE
     Indication: PRODUCT USED FOR UNKNOWN INDICATION
     Dosage: UNK UNK, BID
     Route: 065
  3. ADOPORT [Suspect]
     Active Substance: TACROLIMUS
     Indication: PRODUCT USED FOR UNKNOWN INDICATION
     Dosage: UNK ((STRENGTH: 1 MG) EVERY MORNING (OM) AND (STRENGTH: 0.5 MG) IN THE EVENING)
     Route: 065

REACTIONS (1)
  - Cardiac disorder [Unknown]
